FAERS Safety Report 7337636-4 (Version None)
Quarter: 2011Q1

REPORT INFORMATION
  Report Type: 
  Country: None (occurrence: None)
  Receive Date: 20110308
  Receipt Date: 20110301
  Transmission Date: 20110831
  Serious: Yes (Other)
  Sender: FDA-Public Use
  Company Number: US-BAYER-2011-019275

PATIENT
  Sex: Female

DRUGS (1)
  1. MIRENA [Suspect]

REACTIONS (7)
  - ABDOMINAL PAIN [None]
  - DEPRESSION SUICIDAL [None]
  - EMOTIONAL DISORDER [None]
  - UTERINE PERFORATION [None]
  - DEVICE DISLOCATION [None]
  - VOMITING [None]
  - PYREXIA [None]
